FAERS Safety Report 17432023 (Version 17)
Quarter: 2021Q1

REPORT INFORMATION
  Report Type: Spontaneous
  Country: US (occurrence: US)
  Receive Date: 20200218
  Receipt Date: 20210311
  Transmission Date: 20210419
  Serious: Yes (Other)
  Sender: FDA-Public Use
  Company Number: US-PFIZER INC-2020071064

PATIENT
  Age: 61 Year
  Sex: Male

DRUGS (7)
  1. METFORMIN [Concomitant]
     Active Substance: METFORMIN HYDROCHLORIDE
     Indication: DIABETES MELLITUS
     Dosage: UNK
  2. XANAX [Concomitant]
     Active Substance: ALPRAZOLAM
     Dosage: 2 MG, 3X/DAY
  3. XANAX [Concomitant]
     Active Substance: ALPRAZOLAM
     Dosage: DECREASE DOSAGE
  4. LYRICA [Suspect]
     Active Substance: PREGABALIN
     Indication: DIABETIC NEUROPATHY
  5. LYRICA [Suspect]
     Active Substance: PREGABALIN
     Indication: SPINAL FRACTURE
     Dosage: UNK
     Dates: start: 2019
  6. LYRICA [Suspect]
     Active Substance: PREGABALIN
     Indication: PAIN
     Dosage: 100 MG, AS NEEDED THREE TIMES A DAY (AS NEEDED)
     Route: 048
  7. LYRICA [Suspect]
     Active Substance: PREGABALIN
     Indication: NEURALGIA

REACTIONS (16)
  - Hip fracture [Unknown]
  - Hypoaesthesia [Unknown]
  - Blindness [Unknown]
  - Tooth loss [Unknown]
  - Skin discolouration [Unknown]
  - Constipation [Unknown]
  - Spinal fracture [Unknown]
  - Pain [Unknown]
  - Vomiting [Unknown]
  - Mental impairment [Unknown]
  - Intervertebral disc protrusion [Unknown]
  - Tinnitus [Unknown]
  - Pain in extremity [Unknown]
  - Deafness [Unknown]
  - Loss of personal independence in daily activities [Unknown]
  - Visual impairment [Unknown]

NARRATIVE: CASE EVENT DATE: 2019
